FAERS Safety Report 5353475-8 (Version None)
Quarter: 2007Q2

REPORT INFORMATION
  Report Type: 
  Country: None (occurrence: None)
  Receive Date: 20070612
  Receipt Date: 20070605
  Transmission Date: 20071010
  Serious: Yes (Hospitalization)
  Sender: FDA-Public Use
  Company Number: PHNU2007DE02022

PATIENT
  Sex: Female
  Weight: 80 kg

DRUGS (4)
  1. EXFORGE [Suspect]
     Indication: HYPERTENSION
     Route: 048
     Dates: start: 20070109
  2. CARVEDILOL [Concomitant]
     Dosage: 1 DF, BID
     Route: 048
  3. MARCUMAR [Concomitant]
     Indication: THROMBOSIS PROPHYLAXIS
     Dates: start: 20070501
  4. DIOVAN [Suspect]
     Indication: HYPERTENSION
     Route: 048
     Dates: start: 20061114

REACTIONS (1)
  - ATRIAL FIBRILLATION [None]
